FAERS Safety Report 7547324-7 (Version None)
Quarter: 2011Q2

REPORT INFORMATION
  Report Type: 
  Country: None (occurrence: None)
  Receive Date: 20110614
  Receipt Date: 20110608
  Transmission Date: 20111010
  Serious: Yes (Hospitalization)
  Sender: FDA-Public Use
  Company Number: JP-SANOFI-AVENTIS-2010SA013683

PATIENT
  Age: 34 Year
  Sex: Male
  Weight: 65 kg

DRUGS (6)
  1. LANTUS [Suspect]
     Dosage: FREQUENCY: BID (IN THE MORNING AND EVENING) DOSE:50 UNIT(S)
     Route: 058
     Dates: start: 20100212
  2. SOLOSTAR [Suspect]
     Indication: TYPE 1 DIABETES MELLITUS
  3. LANTUS [Suspect]
     Indication: TYPE 1 DIABETES MELLITUS
     Dosage: FREQUENCY: BID (IN THE MORNING AND EVENING) DOSE:30 UNIT(S)
     Route: 058
     Dates: end: 20100211
  4. NOVOLIN R [Concomitant]
     Indication: TYPE 1 DIABETES MELLITUS
     Dosage: FREQUENCY: BID (IN THE MORNING AND EVENING) DOSE:30 UNIT(S)
     Route: 058
     Dates: end: 20100211
  5. NOVOLIN R [Concomitant]
     Dosage: 300 UNITS/DAY BY DRIP (200 UNITS IN THE MORNING AND 100 UNITS EVENING)
     Route: 041
     Dates: start: 20100212
  6. AMARYL [Concomitant]
     Route: 048

REACTIONS (1)
  - INSULIN RESISTANCE [None]
